FAERS Safety Report 4349311-9 (Version None)
Quarter: 2004Q2

REPORT INFORMATION
  Report Type: 
  Country: None (occurrence: None)
  Receive Date: 20040428
  Receipt Date: 20020902
  Transmission Date: 20050107
  Serious: Yes (Hospitalization, Other)
  Sender: FDA-Public Use
  Company Number: US-BRISTOL-MYERS SQUIBB COMPANY-12022836

PATIENT
  Age: 28 Year
  Sex: Male

DRUGS (5)
  1. BMS224818 [Concomitant]
     Dosage: -SEVENTH COURSE OF TREATMENT. NOT REALLOCATED
     Route: 042
     Dates: start: 20020118, end: 20020828
  2. MYCOPHENOLATE MOFETIL [Suspect]
     Dates: start: 20020618
  3. PREDNISONE [Suspect]
     Dates: start: 20020618
  4. BASILIXIMAB [Suspect]
  5. METHYLPREDNISOLONE [Suspect]

REACTIONS (1)
  - KIDNEY TRANSPLANT REJECTION [None]
